FAERS Safety Report 9525919 (Version 1)
Quarter: 2013Q1

REPORT INFORMATION
  Report Type: Spontaneous
  Country: US (occurrence: None)
  Receive Date: 20130314
  Receipt Date: 20130314
  Transmission Date: 20140127
  Serious: Yes (Other)
  Sender: FDA-Public Use
  Company Number: 1210USA000746

PATIENT
  Sex: Female
  Weight: 81.6 kg

DRUGS (1)
  1. EMEND [Suspect]
     Indication: PROPHYLAXIS OF NAUSEA AND VOMITING
     Dosage: 150 MICROGRAM, UNK, INTRAVENOUS
     Route: 042
     Dates: start: 20120315

REACTIONS (3)
  - Erythema [None]
  - Dyspnoea [None]
  - Flushing [None]
